FAERS Safety Report 8837614 (Version 2)
Quarter: 2013Q2

REPORT INFORMATION
  Report Type: Spontaneous
  Country: US (occurrence: US)
  Receive Date: 20121012
  Receipt Date: 20130403
  Transmission Date: 20140414
  Serious: No
  Sender: FDA-Public Use
  Company Number: US-009507513-1210USA004198

PATIENT
  Sex: Male

DRUGS (1)
  1. AZASITE [Suspect]
     Indication: BLEPHARITIS
     Dosage: UNK
     Route: 065
     Dates: start: 20121001

REACTIONS (5)
  - Drug dose omission [Unknown]
  - Overdose [Unknown]
  - Product physical issue [Unknown]
  - Product quality issue [Unknown]
  - No adverse event [Unknown]
